FAERS Safety Report 8974071 (Version 1)
Quarter: 2012Q4

REPORT INFORMATION
  Report Type: 
  Country: CA (occurrence: CA)
  Receive Date: 20121218
  Receipt Date: 20121218
  Transmission Date: 20130627
  Serious: Yes (Life-Threatening, Hospitalization, Other)
  Sender: FDA-Public Use
  Company Number: CA-ELI_LILLY_AND_COMPANY-CA201212002116

PATIENT
  Age: 74 Year
  Sex: Male

DRUGS (12)
  1. FORTEO [Suspect]
     Indication: OSTEOPOROSIS
     Dosage: 20 ug, qd
     Route: 058
     Dates: start: 20111123
  2. LISINOPRIL [Concomitant]
  3. CLONAZEPAM [Concomitant]
  4. PLAQUENIL [Concomitant]
  5. METHOTREXATE [Concomitant]
  6. VITAMIN D [Concomitant]
  7. ROCALTROL [Concomitant]
  8. LOSEC [Concomitant]
  9. FOLIC ACID [Concomitant]
  10. ASA [Concomitant]
     Dosage: 81 mg, UNK
  11. BUSPIRONE [Concomitant]
  12. LIPITOR [Concomitant]

REACTIONS (5)
  - Cardiac arrest [Recovering/Resolving]
  - Heart valve operation [Recovering/Resolving]
  - Coronary artery bypass [Recovering/Resolving]
  - Cardiac infection [Unknown]
  - Dyspnoea [Recovering/Resolving]
